FAERS Safety Report 13656210 (Version 2)
Quarter: 2017Q2

REPORT INFORMATION
  Report Type: Spontaneous
  Country: DE (occurrence: DE)
  Receive Date: 20170615
  Receipt Date: 20170628
  Transmission Date: 20170830
  Serious: Yes (Death, Life-Threatening, Other)
  Sender: FDA-Public Use
  Company Number: DE-BRISTOL-MYERS SQUIBB COMPANY-BMS-2017-043291

PATIENT
  Age: 73 Year
  Sex: Female
  Weight: 43 kg

DRUGS (1)
  1. OPDIVO [Suspect]
     Active Substance: NIVOLUMAB
     Indication: NON-SMALL CELL LUNG CANCER
     Dosage: 140 MG, UNK
     Route: 042
     Dates: start: 20170504

REACTIONS (9)
  - General physical health deterioration [Fatal]
  - Large intestine perforation [Fatal]
  - Sepsis [Unknown]
  - Peritonitis [Fatal]
  - Multiple organ dysfunction syndrome [Fatal]
  - Surgery [Unknown]
  - Acute abdomen [Fatal]
  - Diverticulitis [Fatal]
  - Pleural effusion [Unknown]

NARRATIVE: CASE EVENT DATE: 20170509
